APPROVED DRUG PRODUCT: VANCOMYCIN HYDROCHLORIDE
Active Ingredient: VANCOMYCIN HYDROCHLORIDE
Strength: EQ 750MG BASE/VIAL
Dosage Form/Route: INJECTABLE;INJECTION
Application: A062912 | Product #002 | TE Code: AP
Applicant: HOSPIRA INC
Approved: Jan 7, 2009 | RLD: No | RS: No | Type: RX